FAERS Safety Report 21779788 (Version 3)
Quarter: 2023Q1

REPORT INFORMATION
  Report Type: Report from Study
  Country: AU (occurrence: AU)
  Receive Date: 20221226
  Receipt Date: 20230119
  Transmission Date: 20230418
  Serious: Yes (Hospitalization)
  Sender: FDA-Public Use
  Company Number: AU-REGENERON PHARMACEUTICALS, INC.-2022-159752

PATIENT
  Age: 50 Year
  Sex: Male

DRUGS (5)
  1. CEMIPLIMAB [Suspect]
     Active Substance: CEMIPLIMAB
     Indication: Diabetic ketoacidosis
     Dosage: 350 MILLIGRAM. EVERY 3 WEEKS
     Route: 042
     Dates: start: 20220419, end: 20220531
  2. CEMIPLIMAB [Suspect]
     Active Substance: CEMIPLIMAB
     Dosage: 350 MILLIGRAM. EVERY 3 WEEKS
     Route: 042
     Dates: start: 20221006, end: 20221006
  3. CEMIPLIMAB [Suspect]
     Active Substance: CEMIPLIMAB
     Dosage: UNK
     Route: 042
     Dates: start: 20221129, end: 20221129
  4. SERINE/THREONINE-PROTEIN KINASE 19 [Suspect]
     Active Substance: SERINE/THREONINE-PROTEIN KINASE 19
     Indication: Diabetic ketoacidosis
     Dosage: 1X10^6 PFU/ML, ONCE, (TOTAL VOLUME 8 ML)
     Route: 036
     Dates: start: 20220329, end: 20220329
  5. SERINE/THREONINE-PROTEIN KINASE 19 [Suspect]
     Active Substance: SERINE/THREONINE-PROTEIN KINASE 19
     Dosage: 1 X 10^6 PFU/ML EVERY THREE WEEKS (Q3W), (TOTAL VOLUME 5 ML)
     Route: 036
     Dates: start: 20220531, end: 20220712

REACTIONS (2)
  - Type 1 diabetes mellitus [Recovered/Resolved]
  - Diabetic ketoacidosis [Recovered/Resolved]

NARRATIVE: CASE EVENT DATE: 20221207
